FAERS Safety Report 16987352 (Version 1)
Quarter: 2019Q4

REPORT INFORMATION
  Report Type: Spontaneous
  Country: BY (occurrence: BY)
  Receive Date: 20191102
  Receipt Date: 20191102
  Transmission Date: 20200122
  Serious: Yes (Hospitalization)
  Sender: FDA-Public Use
  Company Number: NVSC2019BY022445

PATIENT

DRUGS (1)
  1. MORISE [MOMETASONE] [Suspect]
     Active Substance: MOMETASONE
     Indication: PRODUCT USED FOR UNKNOWN INDICATION
     Dosage: 50 UG, UNKNOWN (PER DOSE)
     Route: 065

REACTIONS (1)
  - Laryngeal oedema [Unknown]
